FAERS Safety Report 23739548 (Version 4)
Quarter: 2024Q4

REPORT INFORMATION
  Report Type: Spontaneous
  Country: CA (occurrence: CA)
  Receive Date: 20240413
  Receipt Date: 20241121
  Transmission Date: 20250115
  Serious: Yes (Hospitalization)
  Sender: BOEHRINGER INGELHEIM
  Company Number: CA-BoehringerIngelheim-2024-BI-021541

PATIENT
  Age: 65 Year
  Sex: Female

DRUGS (38)
  1. PRAMIPEXOLE [Suspect]
     Active Substance: PRAMIPEXOLE\PRAMIPEXOLE DIHYDROCHLORIDE
     Indication: Depression
  2. APIXABAN [Suspect]
     Active Substance: APIXABAN
     Indication: Product used for unknown indication
  3. REXULTI [Suspect]
     Active Substance: BREXPIPRAZOLE
     Indication: Product used for unknown indication
  4. FLUOXETINE [Suspect]
     Active Substance: FLUOXETINE HYDROCHLORIDE
     Indication: Depression
  5. GABAPENTIN [Suspect]
     Active Substance: GABAPENTIN
     Indication: Depression
  6. DAYVIGO [Suspect]
     Active Substance: LEMBOREXANT
     Indication: Depression
  7. LEVOMEPROMAZINE [Suspect]
     Active Substance: LEVOMEPROMAZINE
     Indication: Depression
  8. LORAZEPAM [Suspect]
     Active Substance: LORAZEPAM
     Indication: Depression
  9. MIRTAZAPINE [Suspect]
     Active Substance: MIRTAZAPINE
     Indication: Depression
  10. PAROXETINE [Suspect]
     Active Substance: PAROXETINE
     Indication: Depression
  11. RISPERIDONE [Suspect]
     Active Substance: RISPERIDONE
     Indication: Depression
  12. VENLAFAXINE HYDROCHLORIDE [Suspect]
     Active Substance: VENLAFAXINE HYDROCHLORIDE
     Indication: Depression
     Dosage: CAPSULE, EXTENDED RELEASE
  13. TRINTELLIX [Suspect]
     Active Substance: VORTIOXETINE HYDROBROMIDE
     Indication: Product used for unknown indication
  14. ZOLPIDEM [Suspect]
     Active Substance: ZOLPIDEM TARTRATE
     Indication: Depression
     Dosage: TABLET (ORALLY DISINTEGRATING)
  15. ZOPICLONE [Suspect]
     Active Substance: ZOPICLONE
     Indication: Product used for unknown indication
  16. CANNABIS SATIVA SUBSP. INDICA TOP [Suspect]
     Active Substance: CANNABIS SATIVA SUBSP. INDICA TOP
     Indication: Insomnia
  17. BREXPIPRAZOLE [Suspect]
     Active Substance: BREXPIPRAZOLE
     Indication: Depression
  18. BREXPIPRAZOLE [Suspect]
     Active Substance: BREXPIPRAZOLE
  19. OLANZAPINE [Suspect]
     Active Substance: OLANZAPINE
     Indication: Depression
  20. CLOMIPRAMINE [Suspect]
     Active Substance: CLOMIPRAMINE
     Indication: Depression
  21. ESCITALOPRAM [Suspect]
     Active Substance: ESCITALOPRAM OXALATE
     Indication: Depression
  22. PANTOPRAZOLE [Suspect]
     Active Substance: PANTOPRAZOLE
     Indication: Product used for unknown indication
  23. PANTOPRAZOLE [Suspect]
     Active Substance: PANTOPRAZOLE
  24. PAROXETINE HYDROCHLORIDE [Suspect]
     Active Substance: PAROXETINE HYDROCHLORIDE
     Indication: Depression
  25. PRAMIPEXOLE DIHYDROCHLORIDE [Suspect]
     Active Substance: PRAMIPEXOLE DIHYDROCHLORIDE
     Indication: Product used for unknown indication
  26. PRAMIPEXOLE DIHYDROCHLORIDE [Suspect]
     Active Substance: PRAMIPEXOLE DIHYDROCHLORIDE
  27. LAMOTRIGINE [Suspect]
     Active Substance: LAMOTRIGINE
     Indication: Product used for unknown indication
  28. LURASIDONE HYDROCHLORIDE [Suspect]
     Active Substance: LURASIDONE HYDROCHLORIDE
     Indication: Product used for unknown indication
  29. QUETIAPINE [Suspect]
     Active Substance: QUETIAPINE
     Indication: Depression
     Route: 048
  30. BUPROPION [Suspect]
     Active Substance: BUPROPION
     Indication: Depression
  31. BUPROPION [Suspect]
     Active Substance: BUPROPION
  32. LEMBOREXANT [Suspect]
     Active Substance: LEMBOREXANT
     Indication: Depression
     Route: 048
  33. FLUVOXAMINE MALEATE [Suspect]
     Active Substance: FLUVOXAMINE MALEATE
     Indication: Depression
  34. LEVOMEPROMAZINE MALEATE [Suspect]
     Active Substance: LEVOMEPROMAZINE MALEATE
     Indication: Depression
  35. VORTIOXETINE [Suspect]
     Active Substance: VORTIOXETINE
     Indication: Depression
  36. CANNABIS SATIVA FLOWERING TOP [Suspect]
     Active Substance: CANNABIS SATIVA FLOWERING TOP
     Indication: Insomnia
  37. FLUOXETINE HYDROCHLORIDE [Suspect]
     Active Substance: FLUOXETINE HYDROCHLORIDE
     Indication: Depression
  38. LEVOMEPROMAZINE [Suspect]
     Active Substance: LEVOMEPROMAZINE
     Indication: Depression

REACTIONS (5)
  - Adverse drug reaction [Unknown]
  - Suicidal ideation [Unknown]
  - Drug ineffective [Unknown]
  - Condition aggravated [Unknown]
  - Suicide attempt [Unknown]
